FAERS Safety Report 6504007-X (Version None)
Quarter: 2009Q4

REPORT INFORMATION
  Report Type: 
  Country: None (occurrence: None)
  Receive Date: 20091217
  Receipt Date: 20091209
  Transmission Date: 20100525
  Serious: Yes (Other)
  Sender: FDA-Public Use
  Company Number: US-JNJCH-2009032191

PATIENT
  Age: 1 Month
  Sex: Male
  Weight: 4.1 kg

DRUGS (1)
  1. DESITIN MAXIMUM STRENGTH ORIGINAL PASTE [Suspect]
     Indication: DERMATITIS DIAPER
     Dosage: TEXT:^APPLIED LIBERALLY^, 5 OR 6X IN 12 HOURS
     Route: 061
     Dates: start: 20091208, end: 20091208

REACTIONS (3)
  - APPLICATION SITE BLEEDING [None]
  - APPLICATION SITE EROSION [None]
  - APPLICATION SITE ERYTHEMA [None]
